FAERS Safety Report 22929447 (Version 4)
Quarter: 2024Q1

REPORT INFORMATION
  Report Type: Spontaneous
  Country: US (occurrence: US)
  Receive Date: 20230911
  Receipt Date: 20240131
  Transmission Date: 20240409
  Serious: Yes (Other)
  Sender: FDA-Public Use
  Company Number: US-BRISTOL-MYERS SQUIBB COMPANY-2023-126474

PATIENT
  Age: 84 Year
  Sex: Male
  Weight: 79.6 kg

DRUGS (3)
  1. REVLIMID [Suspect]
     Active Substance: LENALIDOMIDE
     Indication: Follicular lymphoma
     Dosage: FREQUENCY: 21
     Route: 048
  2. REVLIMID [Suspect]
     Active Substance: LENALIDOMIDE
     Dosage: 1 PO DAILY FOR 21 DAYS WITH 7 DAYS OFF
     Route: 048
  3. REVLIMID [Suspect]
     Active Substance: LENALIDOMIDE
     Dosage: 21 DAYS WITH 7 DAYS OFF?QD X 21 DAYS THEN 7 DAYS OFF
     Route: 048
     Dates: start: 20230425

REACTIONS (3)
  - Neutropenia [Unknown]
  - Drug intolerance [Unknown]
  - White blood cell count decreased [Unknown]
